FAERS Safety Report 4480363-1 (Version None)
Quarter: 2004Q4

REPORT INFORMATION
  Report Type: 
  Country: None (occurrence: None)
  Receive Date: 20041018
  Receipt Date: 20041006
  Transmission Date: 20050328
  Serious: Yes (Life-Threatening, Other)
  Sender: FDA-Public Use
  Company Number: HQ3378319JUL2002

PATIENT
  Age: 53 Year
  Sex: Female

DRUGS (8)
  1. SIROLIMUS (SIROLIMUS, TABLET) [Suspect]
     Indication: PROPHYLAXIS AGAINST TRANSPLANT REJECTION
     Dosage: 2 MG 1X PER 1 DAY ORAL
     Route: 048
     Dates: start: 19990610
  2. ATORVASTATIN (ATORVASTATIN) [Concomitant]
  3. ROCALTROL [Concomitant]
  4. FUROSEMIDE [Concomitant]
  5. OMEPRAZOLE [Concomitant]
  6. CALCIUM CARBONATE (CALCIUM CARBONATE) [Concomitant]
  7. INSULIN [Concomitant]
  8. CYCLOSPORINE [Concomitant]

REACTIONS (5)
  - AORTIC DILATATION [None]
  - BILIARY TRACT DISORDER [None]
  - DIVERTICULUM INTESTINAL [None]
  - PANCREATIC NEOPLASM [None]
  - TUMOUR MARKER INCREASED [None]
